FAERS Safety Report 10880324 (Version 2)
Quarter: 2015Q1

REPORT INFORMATION
  Report Type: Spontaneous
  Country: JP (occurrence: JP)
  Receive Date: 20150302
  Receipt Date: 20150310
  Transmission Date: 20150721
  Serious: Yes (Hospitalization, Other)
  Sender: FDA-Public Use
  Company Number: PHHY2015JP003171

PATIENT
  Sex: Male

DRUGS (1)
  1. GLIVEC [Suspect]
     Active Substance: IMATINIB MESYLATE
     Indication: CHRONIC MYELOID LEUKAEMIA
     Dosage: 500 MG, QD
     Route: 048
     Dates: start: 200908, end: 20150106

REACTIONS (7)
  - Interstitial lung disease [Recovering/Resolving]
  - Dyspnoea [Unknown]
  - Tracheal dilatation [Unknown]
  - Renal cyst [Unknown]
  - Oedema peripheral [Recovered/Resolved]
  - Pleural effusion [Unknown]
  - Lymphadenopathy mediastinal [Unknown]

NARRATIVE: CASE EVENT DATE: 2012
